FAERS Safety Report 4779025-2 (Version None)
Quarter: 2005Q3

REPORT INFORMATION
  Report Type: 
  Country: None (occurrence: None)
  Receive Date: 20050914
  Receipt Date: 20050526
  Transmission Date: 20060218
  Serious: Yes (Other)
  Sender: FDA-Public Use
  Company Number: 406303

PATIENT
  Age: 53 Year
  Sex: Female
  Weight: 62.6 kg

DRUGS (1)
  1. BONIVA [Suspect]
     Dosage: 1 PER MONTH ORAL
     Route: 048
     Dates: start: 20050522

REACTIONS (1)
  - DIZZINESS [None]
